FAERS Safety Report 10026345 (Version 1)
Quarter: 2014Q1

REPORT INFORMATION
  Report Type: Spontaneous
  Country: US (occurrence: US)
  Receive Date: 20140321
  Receipt Date: 20140321
  Transmission Date: 20141002
  Serious: No
  Sender: FDA-Public Use
  Company Number: US-ALLERGAN-1313311US

PATIENT
  Sex: Female

DRUGS (3)
  1. LUMIGAN [Suspect]
     Indication: GLAUCOMA
     Dosage: 1 GTT, QHS
     Route: 047
  2. AZOPT [Concomitant]
     Indication: GLAUCOMA
  3. ALPHAGAN [Concomitant]
     Indication: GLAUCOMA

REACTIONS (2)
  - Lacrimation increased [Not Recovered/Not Resolved]
  - Lacrimation increased [Not Recovered/Not Resolved]
